FAERS Safety Report 14985897 (Version 4)
Quarter: 2018Q3

REPORT INFORMATION
  Report Type: Report from Study
  Country: KR (occurrence: KR)
  Receive Date: 20180607
  Receipt Date: 20180823
  Transmission Date: 20181010
  Serious: Yes (Death)
  Sender: FDA-Public Use
  Company Number: KR-KOWA-18JP001300

PATIENT
  Age: 58 Year
  Sex: Male

DRUGS (5)
  1. PITAVASTATIN. [Suspect]
     Active Substance: PITAVASTATIN CALCIUM
     Indication: HYPERLIPIDAEMIA
     Dosage: 2 MG, QD
     Route: 048
     Dates: start: 20171218
  2. ASPRIN [Suspect]
     Active Substance: ASPIRIN
     Indication: CARDIOVASCULAR DISORDER
     Dosage: UNK, UNK
     Route: 048
     Dates: start: 20170620
  3. BRVIX [Suspect]
     Active Substance: CLOPIDOGREL CAMSYLATE
     Indication: CARDIOVASCULAR DISORDER
     Dosage: UNK, UNK
     Route: 048
     Dates: start: 20170620
  4. WARFARIN SODIUM. [Suspect]
     Active Substance: WARFARIN SODIUM
     Indication: CARDIOVASCULAR DISORDER
     Dosage: UNK, UNK
     Route: 048
     Dates: start: 20170622
  5. TELMINUVO [Suspect]
     Active Substance: LEVAMLODIPINE\TELMISARTAN
     Indication: HYPERTENSION
     Dosage: UNK, UNK
     Route: 048
     Dates: start: 20170611

REACTIONS (1)
  - Cerebral haemorrhage [Fatal]

NARRATIVE: CASE EVENT DATE: 20180317
